FAERS Safety Report 9069009 (Version 1)
Quarter: 2013Q1

REPORT INFORMATION
  Report Type: Spontaneous
  Country: US (occurrence: None)
  Receive Date: 20130213
  Receipt Date: 20130213
  Transmission Date: 20140127
  Serious: Yes (Hospitalization)
  Sender: FDA-Public Use
  Company Number: None

PATIENT
  Age: 65 Year
  Sex: Male
  Weight: 88.1 kg

DRUGS (2)
  1. CLOPIDOGREL [Suspect]
     Route: 048
     Dates: start: 20130125, end: 20130126
  2. ASPIRIN [Suspect]
     Route: 048
     Dates: start: 20130119, end: 20130125

REACTIONS (4)
  - Dysphagia [None]
  - Haematoma [None]
  - Dyspnoea [None]
  - Post procedural complication [None]
